FAERS Safety Report 24391155 (Version 1)
Quarter: 2024Q4

REPORT INFORMATION
  Report Type: Spontaneous
  Country: US (occurrence: None)
  Receive Date: 20241002
  Receipt Date: 20241002
  Transmission Date: 20250114
  Serious: Yes (Hospitalization)
  Sender: Public
  Company Number: None

PATIENT
  Sex: Female

DRUGS (3)
  1. ENBREL [Suspect]
     Active Substance: ETANERCEPT
     Indication: Ankylosing spondylitis
     Dosage: FREQUENCY : WEEKLY;?
     Route: 058
     Dates: start: 202304
  2. ELIQUIS [Concomitant]
     Active Substance: APIXABAN
  3. SYNVISC ONF PFS [Concomitant]

REACTIONS (2)
  - Atrial fibrillation [None]
  - Nonspecific reaction [None]
